FAERS Safety Report 12696374 (Version 5)
Quarter: 2017Q1

REPORT INFORMATION
  Report Type: Spontaneous
  Country: BR (occurrence: BR)
  Receive Date: 20160830
  Receipt Date: 20170202
  Transmission Date: 20170428
  Serious: Yes (Death, Other)
  Sender: FDA-Public Use
  Company Number: BR-ROCHE-1822217

PATIENT
  Sex: Female

DRUGS (64)
  1. PREDNISONE. [Concomitant]
     Active Substance: PREDNISONE
     Dosage: 20/10 MG
     Route: 048
     Dates: start: 20151214, end: 20160512
  2. PREDNISONE. [Concomitant]
     Active Substance: PREDNISONE
     Route: 048
     Dates: start: 19860918, end: 19860930
  3. PREDNISONE. [Concomitant]
     Active Substance: PREDNISONE
     Dosage: 40/30MG
     Route: 048
     Dates: start: 19960202, end: 19980506
  4. PREDNISONE. [Concomitant]
     Active Substance: PREDNISONE
     Dosage: 30/20MG
     Route: 048
     Dates: start: 20010523, end: 20010627
  5. PREDNISONE. [Concomitant]
     Active Substance: PREDNISONE
     Route: 048
     Dates: start: 20011015, end: 20011107
  6. PREDNISONE. [Concomitant]
     Active Substance: PREDNISONE
     Route: 048
     Dates: start: 20030525, end: 20030716
  7. MABTHERA [Suspect]
     Active Substance: RITUXIMAB
     Route: 042
     Dates: start: 20150501, end: 20150502
  8. IVIG [Concomitant]
     Active Substance: HUMAN IMMUNOGLOBULIN G
     Indication: MUSCULAR WEAKNESS
     Dosage: 2G/KG
     Route: 042
     Dates: start: 19940118, end: 19940123
  9. PREDNISONE. [Concomitant]
     Active Substance: PREDNISONE
     Dosage: 20/0MG
     Route: 048
     Dates: start: 19871007, end: 19880510
  10. PREDNISONE. [Concomitant]
     Active Substance: PREDNISONE
     Route: 048
     Dates: start: 19940125, end: 19940201
  11. PREDNISONE. [Concomitant]
     Active Substance: PREDNISONE
     Route: 065
     Dates: start: 19940315, end: 19940429
  12. PREDNISONE. [Concomitant]
     Active Substance: PREDNISONE
     Route: 048
     Dates: start: 19940603, end: 19960101
  13. PREDNISONE. [Concomitant]
     Active Substance: PREDNISONE
     Route: 048
     Dates: start: 19960119, end: 19960202
  14. PREDNISONE. [Concomitant]
     Active Substance: PREDNISONE
     Dosage: 30/20MG
     Route: 048
     Dates: start: 20020522, end: 20020529
  15. PREDNISONE. [Concomitant]
     Active Substance: PREDNISONE
     Dosage: 20/10MG
     Route: 048
     Dates: start: 20090909, end: 20090929
  16. PLASMAPHERESIS [Concomitant]
     Active Substance: UNSPECIFIED INGREDIENT
     Route: 042
     Dates: start: 20160516, end: 20160516
  17. PREDNISONE. [Concomitant]
     Active Substance: PREDNISONE
     Route: 048
     Dates: start: 20130104, end: 20130722
  18. PREDNISONE. [Concomitant]
     Active Substance: PREDNISONE
     Route: 048
     Dates: start: 20150608, end: 20151214
  19. PREDNISONE. [Concomitant]
     Active Substance: PREDNISONE
     Route: 048
     Dates: start: 20160512
  20. PREDNISONE. [Concomitant]
     Active Substance: PREDNISONE
     Route: 048
     Dates: start: 19850330, end: 19850411
  21. PREDNISONE. [Concomitant]
     Active Substance: PREDNISONE
     Route: 048
     Dates: start: 19860903, end: 19860918
  22. PREDNISONE. [Concomitant]
     Active Substance: PREDNISONE
     Route: 048
     Dates: start: 19860930, end: 19861014
  23. PREDNISONE. [Concomitant]
     Active Substance: PREDNISONE
     Route: 065
     Dates: start: 19940117, end: 19940125
  24. PREDNISONE. [Concomitant]
     Active Substance: PREDNISONE
     Route: 048
     Dates: start: 20010627, end: 20011015
  25. PREDNISONE. [Concomitant]
     Active Substance: PREDNISONE
     Route: 048
     Dates: start: 20011220, end: 20020522
  26. PREDNISONE. [Concomitant]
     Active Substance: PREDNISONE
     Route: 048
     Dates: start: 20050623, end: 20050720
  27. PREDNISONE. [Concomitant]
     Active Substance: PREDNISONE
     Route: 048
     Dates: start: 20051214, end: 20060104
  28. PREDNISONE. [Concomitant]
     Active Substance: PREDNISONE
     Indication: MUSCULAR WEAKNESS
     Dosage: 20/10 MG
     Route: 048
     Dates: start: 20120323, end: 20130104
  29. PREDNISONE. [Concomitant]
     Active Substance: PREDNISONE
     Route: 048
     Dates: start: 19850806, end: 19850827
  30. PREDNISONE. [Concomitant]
     Active Substance: PREDNISONE
     Route: 048
     Dates: start: 19940429, end: 19940603
  31. PREDNISONE. [Concomitant]
     Active Substance: PREDNISONE
     Route: 048
     Dates: start: 19980506, end: 20010523
  32. PREDNISONE. [Concomitant]
     Active Substance: PREDNISONE
     Dosage: 50/20MG
     Route: 048
     Dates: start: 20020925, end: 20021127
  33. PREDNISONE. [Concomitant]
     Active Substance: PREDNISONE
     Route: 048
     Dates: start: 20030410, end: 20030525
  34. MABTHERA [Suspect]
     Active Substance: RITUXIMAB
     Indication: MYASTHENIA GRAVIS
     Route: 042
     Dates: start: 20120719, end: 20120720
  35. IVIG [Concomitant]
     Active Substance: HUMAN IMMUNOGLOBULIN G
     Dosage: 1 G/KG
     Route: 042
     Dates: start: 20150929, end: 20151001
  36. PREDNISONE. [Concomitant]
     Active Substance: PREDNISONE
     Route: 048
     Dates: start: 19850411, end: 19850806
  37. PREDNISONE. [Concomitant]
     Active Substance: PREDNISONE
     Dosage: 80/70MG
     Route: 048
     Dates: start: 19861014, end: 19861021
  38. PREDNISONE. [Concomitant]
     Active Substance: PREDNISONE
     Dosage: 80/60MG
     Route: 048
     Dates: start: 19861021, end: 19861111
  39. PREDNISONE. [Concomitant]
     Active Substance: PREDNISONE
     Route: 048
     Dates: start: 19960107, end: 19960119
  40. PREDNISONE. [Concomitant]
     Active Substance: PREDNISONE
     Dosage: 50/30MG
     Route: 048
     Dates: start: 20031022, end: 20040901
  41. PREDNISONE. [Concomitant]
     Active Substance: PREDNISONE
     Route: 048
     Dates: start: 20040901, end: 20050616
  42. PREDNISONE. [Concomitant]
     Active Substance: PREDNISONE
     Route: 048
     Dates: start: 20061212, end: 20090909
  43. MABTHERA [Suspect]
     Active Substance: RITUXIMAB
     Indication: NEUROMYELITIS OPTICA SPECTRUM DISORDER
     Route: 042
     Dates: start: 20120802, end: 20120803
  44. MABTHERA [Suspect]
     Active Substance: RITUXIMAB
     Route: 042
     Dates: start: 20131121, end: 20131122
  45. IVIG [Concomitant]
     Active Substance: HUMAN IMMUNOGLOBULIN G
     Dosage: 2G/KG
     Route: 042
     Dates: start: 20050616, end: 20050621
  46. PREDNISONE. [Concomitant]
     Active Substance: PREDNISONE
     Dosage: 20/10 MG
     Route: 048
     Dates: start: 20130722, end: 20150608
  47. PREDNISONE. [Concomitant]
     Active Substance: PREDNISONE
     Route: 048
     Dates: start: 19850317, end: 19850330
  48. PREDNISONE. [Concomitant]
     Active Substance: PREDNISONE
     Dosage: 80/30MG UNTIL 0MG
     Route: 048
     Dates: start: 19861111, end: 19870215
  49. PREDNISONE. [Concomitant]
     Active Substance: PREDNISONE
     Dosage: 80/40MG
     Route: 048
     Dates: start: 19870217, end: 19871006
  50. PREDNISONE. [Concomitant]
     Active Substance: PREDNISONE
     Dosage: 40/0MG
     Route: 048
     Dates: start: 19880510, end: 19940117
  51. PREDNISONE. [Concomitant]
     Active Substance: PREDNISONE
     Dosage: 50/40MG
     Route: 048
     Dates: start: 20030716, end: 20031022
  52. PREDNISONE. [Concomitant]
     Active Substance: PREDNISONE
     Route: 048
     Dates: start: 20060104, end: 20061212
  53. PREDNISONE. [Concomitant]
     Active Substance: PREDNISONE
     Dosage: 40/0 MG
     Route: 048
     Dates: start: 19850827, end: 19850924
  54. PREDNISONE. [Concomitant]
     Active Substance: PREDNISONE
     Route: 048
     Dates: start: 19860830, end: 19860903
  55. PREDNISONE. [Concomitant]
     Active Substance: PREDNISONE
     Route: 048
     Dates: start: 20021127, end: 20030410
  56. PREDNISONE. [Concomitant]
     Active Substance: PREDNISONE
     Route: 048
     Dates: start: 20091018, end: 20120323
  57. PLASMAPHERESIS [Concomitant]
     Active Substance: UNSPECIFIED INGREDIENT
     Route: 042
     Dates: start: 19860821, end: 19860826
  58. IVIG [Concomitant]
     Active Substance: HUMAN IMMUNOGLOBULIN G
     Dosage: 2G/KG
     Route: 042
     Dates: start: 20060104, end: 20060109
  59. PREDNISONE. [Concomitant]
     Active Substance: PREDNISONE
     Dosage: 5/0MG
     Route: 048
     Dates: start: 19871006, end: 19871007
  60. PREDNISONE. [Concomitant]
     Active Substance: PREDNISONE
     Route: 048
     Dates: start: 19960101, end: 19960107
  61. PREDNISONE. [Concomitant]
     Active Substance: PREDNISONE
     Dosage: 40/20MG
     Route: 048
     Dates: start: 20020529, end: 20020925
  62. PREDNISONE. [Concomitant]
     Active Substance: PREDNISONE
     Route: 048
     Dates: start: 20050720, end: 20051019
  63. PREDNISONE. [Concomitant]
     Active Substance: PREDNISONE
     Route: 048
     Dates: start: 20051019, end: 20051214
  64. PREDNISONE. [Concomitant]
     Active Substance: PREDNISONE
     Dosage: 20/10MG
     Route: 048
     Dates: start: 20120323, end: 20130104

REACTIONS (21)
  - Ophthalmoplegia [Unknown]
  - Nausea [Unknown]
  - Vomiting [Unknown]
  - Bradykinesia [Unknown]
  - Anti-muscle specific kinase antibody positive [Unknown]
  - Pneumonia [Fatal]
  - Multiple organ dysfunction syndrome [Fatal]
  - Lung infection [Unknown]
  - Fatigue [Unknown]
  - Off label use [Fatal]
  - Dysphagia [Unknown]
  - Resting tremor [Unknown]
  - Progressive multifocal leukoencephalopathy [Fatal]
  - Cognitive disorder [Unknown]
  - Dysarthria [Unknown]
  - Paraesthesia [Unknown]
  - Septic shock [Fatal]
  - Sepsis [Fatal]
  - Respiratory failure [Fatal]
  - Myasthenia gravis crisis [Unknown]
  - Decreased appetite [Unknown]
